FAERS Safety Report 5758597-5 (Version None)
Quarter: 2008Q2

REPORT INFORMATION
  Report Type: 
  Country: None (occurrence: None)
  Receive Date: 20080604
  Receipt Date: 20080526
  Transmission Date: 20081010
  Serious: Yes (Hospitalization)
  Sender: FDA-Public Use
  Company Number: B0522309A

PATIENT
  Age: 68 Year
  Sex: Male

DRUGS (7)
  1. FORTUM [Suspect]
     Indication: DRUG USE FOR UNKNOWN INDICATION
     Route: 042
     Dates: start: 20080226, end: 20080316
  2. ZAVEDOS [Suspect]
     Indication: DRUG USE FOR UNKNOWN INDICATION
     Dosage: 12MG PER DAY
     Route: 042
     Dates: start: 20080304, end: 20080309
  3. ARACYTINE [Suspect]
     Indication: DRUG USE FOR UNKNOWN INDICATION
     Dosage: 166MG PER DAY
     Route: 042
     Dates: start: 20080304, end: 20080310
  4. BELUSTINE [Suspect]
     Indication: DRUG USE FOR UNKNOWN INDICATION
     Dosage: 320MG PER DAY
     Route: 042
     Dates: start: 20080304, end: 20080304
  5. OFLOCET [Suspect]
     Indication: DRUG USE FOR UNKNOWN INDICATION
     Route: 042
     Dates: start: 20080226, end: 20080316
  6. VANCOMYCIN HCL [Suspect]
     Indication: DRUG USE FOR UNKNOWN INDICATION
     Route: 042
     Dates: start: 20080228, end: 20080316
  7. AMBISOME [Suspect]
     Indication: DRUG USE FOR UNKNOWN INDICATION
     Route: 042
     Dates: start: 20080229, end: 20080306

REACTIONS (7)
  - ANURIA [None]
  - PRURITUS [None]
  - RASH [None]
  - RASH MACULO-PAPULAR [None]
  - RENAL FAILURE ACUTE [None]
  - SCRATCH [None]
  - SKIN LESION [None]
